FAERS Safety Report 7170998-X (Version None)
Quarter: 2010Q4

REPORT INFORMATION
  Report Type: 
  Country: None (occurrence: None)
  Receive Date: 20101217
  Receipt Date: 20101209
  Transmission Date: 20110411
  Serious: Yes (Hospitalization)
  Sender: FDA-Public Use
  Company Number: US-ELI_LILLY_AND_COMPANY-US201011006341

PATIENT
  Sex: Male
  Weight: 73 kg

DRUGS (3)
  1. GEMCITABINE HCL [Suspect]
     Indication: NEOPLASM
     Dosage: 1000 MG/M2, OVER 30 MIN ON DAY 1-8 EVERY 21 DAYS
     Route: 042
     Dates: start: 20100901, end: 20101022
  2. OTHER PHARMA COMPANY INV DRUG [Suspect]
     Indication: NEOPLASM
     Dosage: 425 MG, DAY 1-3 AND 1-8 EVERY 21 DAYS
     Route: 048
     Dates: start: 20100901, end: 20101022
  3. POTASSIUM CHLORIDE [Concomitant]
     Indication: HYPONATRAEMIA
     Dosage: 4 MEQ, AS NEEDED
     Dates: start: 20100905

REACTIONS (2)
  - PNEUMONIA [None]
  - PNEUMONITIS [None]
